FAERS Safety Report 10376741 (Version 1)
Quarter: 2014Q1

REPORT INFORMATION
  Report Type: Spontaneous
  Country: US (occurrence: None)
  Receive Date: 20140306
  Receipt Date: 20140306
  Transmission Date: 20141002
  Serious: Yes (Other)
  Sender: FDA-Public Use
  Company Number: 163-21880-13042123

PATIENT
  Age: 72 Year
  Sex: Male

DRUGS (3)
  1. REVLIMID (LENALIDOMIDE) (25 MILLIGRAM CAPSULES) [Suspect]
     Indication: PLASMA CELL MYELOMA
     Dosage: 25MG, 14 IN 14 D, PO
     Route: 048
     Dates: start: 201302
  2. ASA (ACETYLSALICYLIC ACID) [Concomitant]
  3. VELCADE (BORTEZOMIB) [Concomitant]

REACTIONS (1)
  - Platelet count decreased [None]
